FAERS Safety Report 12017691 (Version 1)
Quarter: 2016Q1

REPORT INFORMATION
  Report Type: Report from Study
  Country: US (occurrence: US)
  Receive Date: 20160205
  Receipt Date: 20160205
  Transmission Date: 20160526
  Serious: No
  Sender: FDA-Public Use
  Company Number: US-ABBVIE-15K-163-1453359-00

PATIENT
  Age: 55 Year
  Sex: Female
  Weight: 74.46 kg

DRUGS (4)
  1. LEFLUNOMIDE. [Concomitant]
     Active Substance: LEFLUNOMIDE
     Indication: RHEUMATOID ARTHRITIS
  2. HUMIRA [Suspect]
     Active Substance: ADALIMUMAB
     Indication: RHEUMATOID ARTHRITIS
     Route: 058
     Dates: start: 201505, end: 20150807
  3. CELEBREX [Concomitant]
     Active Substance: CELECOXIB
     Indication: RHEUMATOID ARTHRITIS
  4. LOSARTAN. [Concomitant]
     Active Substance: LOSARTAN
     Indication: HYPERTENSION

REACTIONS (6)
  - Cardiac failure congestive [Unknown]
  - Cardiac disorder [Recovering/Resolving]
  - Peripheral swelling [Not Recovered/Not Resolved]
  - Dyspnoea [Recovering/Resolving]
  - Joint swelling [Not Recovered/Not Resolved]
  - Agitation [Recovering/Resolving]

NARRATIVE: CASE EVENT DATE: 201508
